FAERS Safety Report 8414349-9 (Version None)
Quarter: 2012Q2

REPORT INFORMATION
  Report Type: 
  Country: None (occurrence: None)
  Receive Date: 20120605
  Receipt Date: 20120522
  Transmission Date: 20120825
  Serious: No
  Sender: FDA-Public Use
  Company Number: US-ASTRAZENECA-2012SE32911

PATIENT
  Age: 71 Year
  Sex: Female
  Weight: 90.7 kg

DRUGS (5)
  1. NEXIUM [Suspect]
     Indication: GASTROOESOPHAGEAL REFLUX DISEASE
     Route: 048
  2. TOPROL-XL [Concomitant]
     Indication: BLOOD PRESSURE
  3. COZAAR [Concomitant]
     Indication: BLOOD PRESSURE
  4. METFORMIN HCL [Concomitant]
     Indication: GLUCOSE TOLERANCE IMPAIRED
  5. LEVOTHYROXINE SODIUM [Concomitant]
     Indication: THYROID DISORDER

REACTIONS (3)
  - GLUCOSE TOLERANCE IMPAIRED [None]
  - CHEST PAIN [None]
  - INTENTIONAL DRUG MISUSE [None]
